FAERS Safety Report 9088695 (Version 5)
Quarter: 2014Q2

REPORT INFORMATION
  Report Type: Report from Study
  Country: FR (occurrence: FR)
  Receive Date: 20130131
  Receipt Date: 20140418
  Transmission Date: 20141212
  Serious: Yes (Hospitalization, Other)
  Sender: FDA-Public Use
  Company Number: FR-CELGENEUS-056-21880-12122603

PATIENT
  Age: 63 Year
  Sex: Female
  Weight: 60 kg

DRUGS (12)
  1. REVLIMID [Suspect]
     Indication: DIFFUSE LARGE B-CELL LYMPHOMA
     Dosage: 25 MILLIGRAM
     Route: 048
     Dates: start: 20120109, end: 20120206
  2. REVLIMID [Suspect]
     Dosage: 20 MILLIGRAM
     Route: 048
     Dates: start: 20120313, end: 20120423
  3. REVLIMID [Suspect]
     Dosage: 15 MILLIGRAM
     Route: 048
     Dates: start: 20120521, end: 20120618
  4. REVLIMID [Suspect]
     Dosage: 10 MILLIGRAM
     Route: 048
     Dates: start: 20121012, end: 20121028
  5. VAXIGRIP [Concomitant]
     Indication: PROPHYLAXIS
     Route: 058
     Dates: start: 20121107, end: 20121207
  6. ASPIRINE [Concomitant]
     Indication: THROMBOSIS PROPHYLAXIS
     Route: 065
     Dates: start: 20120109, end: 20121122
  7. ORACILLINE [Concomitant]
     Indication: INFECTION PROPHYLAXIS
     Route: 065
     Dates: start: 201204
  8. BACTRIM FORTE [Concomitant]
     Indication: PROPHYLAXIS
     Route: 065
     Dates: start: 20120622
  9. ZELITREX [Concomitant]
     Indication: INFECTION PROPHYLAXIS
     Route: 065
     Dates: start: 20120622
  10. SPECIAFOLDINE [Concomitant]
     Indication: INFECTION PROPHYLAXIS
     Route: 065
     Dates: start: 20120622
  11. MELPHALAN [Concomitant]
     Indication: NON-HODGKIN^S LYMPHOMA
     Route: 065
     Dates: start: 20130914
  12. ARAC [Concomitant]
     Indication: NON-HODGKIN^S LYMPHOMA
     Route: 050
     Dates: start: 20130918

REACTIONS (2)
  - Acute lymphocytic leukaemia [Not Recovered/Not Resolved]
  - Histiocytosis haematophagic [Not Recovered/Not Resolved]
